FAERS Safety Report 5491875-6 (Version None)
Quarter: 2007Q4

REPORT INFORMATION
  Report Type: 
  Country: None (occurrence: None)
  Receive Date: 20071018
  Receipt Date: 20071011
  Transmission Date: 20080405
  Serious: Yes (Other)
  Sender: FDA-Public Use
  Company Number: 2007SP020728

PATIENT
  Age: 45 Year
  Sex: Male

DRUGS (2)
  1. PEG-INTRON [Suspect]
     Indication: HEPATITIS C
     Dosage: ;SC
     Route: 058
     Dates: start: 20070720
  2. RIBAVIRIN [Suspect]
     Indication: HEPATITIS C
     Dosage: ;PO
     Route: 048
     Dates: start: 20070720

REACTIONS (11)
  - BONE PAIN [None]
  - CHILLS [None]
  - DEHYDRATION [None]
  - DYSGEUSIA [None]
  - FRUSTRATION [None]
  - INSOMNIA [None]
  - LOOSE TOOTH [None]
  - ORAL MUCOSAL BLISTERING [None]
  - PYREXIA [None]
  - TOOTH FRACTURE [None]
  - WEIGHT DECREASED [None]
